FAERS Safety Report 24655410 (Version 3)
Quarter: 2025Q1

REPORT INFORMATION
  Report Type: Spontaneous
  Country: IT (occurrence: IT)
  Receive Date: 20241123
  Receipt Date: 20250205
  Transmission Date: 20250409
  Serious: Yes (Hospitalization, Other)
  Sender: AUROBINDO
  Company Number: IT-ORG100016242-2024000646

PATIENT
  Age: 39 Year
  Sex: Female

DRUGS (20)
  1. BUPIVACAINE [Suspect]
     Active Substance: BUPIVACAINE
     Indication: Transversus abdominis plane block
     Dosage: 30 MILLILITER, ONCE A DAY
  2. BUPIVACAINE [Suspect]
     Active Substance: BUPIVACAINE
     Indication: Pain management
     Dosage: 30 MILLILITER, ONCE A DAY
  3. BUPIVACAINE [Suspect]
     Active Substance: BUPIVACAINE
     Indication: Colectomy
     Dosage: 30 MILLILITER, ONCE A DAY
  4. BUPIVACAINE [Suspect]
     Active Substance: BUPIVACAINE
     Dosage: 30 MILLILITER, ONCE A DAY
  5. BUPIVACAINE [Suspect]
     Active Substance: BUPIVACAINE
     Dosage: 30 MILLILITER, ONCE A DAY
  6. BUPIVACAINE [Suspect]
     Active Substance: BUPIVACAINE
     Dosage: 30 MILLILITER, ONCE A DAY
  7. BUPIVACAINE [Suspect]
     Active Substance: BUPIVACAINE
     Dosage: 30 MILLILITER, ONCE A DAY
  8. EXPAREL [Suspect]
     Active Substance: BUPIVACAINE
     Indication: Nerve block
     Dosage: 266 MILLIGRAM, ONCE A DAY
  9. EXPAREL [Suspect]
     Active Substance: BUPIVACAINE
     Indication: Pain management
     Dosage: 266 MILLIGRAM, ONCE A DAY
  10. EXPAREL [Suspect]
     Active Substance: BUPIVACAINE
     Indication: Colectomy
     Dosage: 266 MILLIGRAM, ONCE A DAY
  11. EXPAREL [Suspect]
     Active Substance: BUPIVACAINE
     Dosage: 266 MILLIGRAM, ONCE A DAY
  12. BUPIVACAINE [Suspect]
     Active Substance: BUPIVACAINE
     Indication: Postoperative analgesia
     Route: 008
  13. LIDOCAINE [Suspect]
     Active Substance: LIDOCAINE
     Indication: Epidural test dose
     Route: 065
  14. EPINEPHRINE [Suspect]
     Active Substance: EPINEPHRINE
     Indication: Epidural test dose
     Route: 065
  15. ACETAMINOPHEN [Concomitant]
     Active Substance: ACETAMINOPHEN
     Indication: Analgesic therapy
     Route: 065
  16. KETAMINE [Concomitant]
     Active Substance: KETAMINE
     Indication: Analgesic therapy
     Route: 065
  17. MORPHINE [Concomitant]
     Active Substance: MORPHINE
     Indication: Analgesic therapy
     Route: 065
  18. GABAPENTIN [Concomitant]
     Active Substance: GABAPENTIN
     Indication: Pain
     Route: 065
  19. MAGNESIUM [Concomitant]
     Active Substance: MAGNESIUM
     Indication: Pain
     Route: 065
  20. HYDROMORPHONE [Concomitant]
     Active Substance: HYDROMORPHONE
     Indication: Pain
     Route: 065

REACTIONS (8)
  - Postoperative ileus [Unknown]
  - Procedural pain [Unknown]
  - Labelled drug-drug interaction medication error [Unknown]
  - Inappropriate schedule of product administration [Unknown]
  - Drug ineffective [Unknown]
  - Post procedural fever [Unknown]
  - Tachycardia [Unknown]
  - Hypoaesthesia [Unknown]
